FAERS Safety Report 14650131 (Version 3)
Quarter: 2018Q2

REPORT INFORMATION
  Report Type: Report from Study
  Country: FR (occurrence: FR)
  Receive Date: 20180316
  Receipt Date: 20180507
  Transmission Date: 20180711
  Serious: Yes (Hospitalization)
  Sender: FDA-Public Use
  Company Number: FR-PFIZER INC-2018106150

PATIENT
  Age: 48 Year
  Sex: Male

DRUGS (1)
  1. ATORVASTATIN CALCIUM. [Suspect]
     Active Substance: ATORVASTATIN CALCIUM
     Indication: ISCHAEMIC STROKE
     Dosage: 40 MG, DAILY FOR THREE YEARS
     Route: 065

REACTIONS (5)
  - Motor dysfunction [Unknown]
  - Dysphagia [Unknown]
  - Condition aggravated [Unknown]
  - Blood creatine phosphokinase increased [Unknown]
  - Immune-mediated necrotising myopathy [Unknown]

NARRATIVE: CASE EVENT DATE: 201307
